FAERS Safety Report 21586829 (Version 2)
Quarter: 2022Q4

REPORT INFORMATION
  Report Type: Spontaneous
  Country: CA (occurrence: CA)
  Receive Date: 20221113
  Receipt Date: 20221123
  Transmission Date: 20230113
  Serious: Yes (Other)
  Sender: FDA-Public Use
  Company Number: CA-JNJFOC-20221126506

PATIENT
  Age: 75 Year
  Sex: Female
  Weight: 73 kg

DRUGS (2)
  1. REMICADE [Suspect]
     Active Substance: INFLIXIMAB
     Indication: Colitis ulcerative
     Route: 041
  2. PREDNISONE [Concomitant]
     Active Substance: PREDNISONE

REACTIONS (5)
  - Haematochezia [Unknown]
  - Condition aggravated [Unknown]
  - Abdominal pain [Unknown]
  - Drug ineffective [Unknown]
  - Off label use [Unknown]
